FAERS Safety Report 6375597-5 (Version None)
Quarter: 2009Q3

REPORT INFORMATION
  Report Type: 
  Country: None (occurrence: None)
  Receive Date: 20090921
  Receipt Date: 20090914
  Transmission Date: 20100115
  Serious: Yes (Hospitalization)
  Sender: FDA-Public Use
  Company Number: SPV1-2009-01836

PATIENT
  Age: 64 Year
  Sex: Female
  Weight: 82.5 kg

DRUGS (3)
  1. LIALDA [Suspect]
     Dosage: 2.4 G,  1XIDAY: QD, ORAL
     Route: 048
  2. ASPIRIN [Concomitant]
  3. SINGULAIR [Concomitant]

REACTIONS (6)
  - ABDOMINAL PAIN UPPER [None]
  - ARTHROPATHY [None]
  - FALL [None]
  - FEELING ABNORMAL [None]
  - HIP FRACTURE [None]
  - JOINT INJURY [None]
